FAERS Safety Report 5261839-6 (Version None)
Quarter: 2007Q1

REPORT INFORMATION
  Report Type: 
  Country: None (occurrence: None)
  Receive Date: 20070310
  Receipt Date: 20070228
  Transmission Date: 20070707
  Serious: Yes (Hospitalization)
  Sender: FDA-Public Use
  Company Number: 2006UW25045

PATIENT
  Age: 21047 Day
  Sex: Female
  Weight: 66.4 kg

DRUGS (3)
  1. SEROQUEL [Suspect]
     Indication: SLEEP DISORDER
     Dosage: 100 MG, 200 MG
     Route: 048
     Dates: start: 20020414, end: 20051128
  2. LITHIUM CARBONATE [Concomitant]
  3. ZOLOFT [Concomitant]

REACTIONS (2)
  - DIABETES MELLITUS [None]
  - STENT PLACEMENT [None]
